FAERS Safety Report 6042389-6 (Version None)
Quarter: 2009Q1

REPORT INFORMATION
  Report Type: 
  Country: None (occurrence: None)
  Receive Date: 20090116
  Receipt Date: 20090105
  Transmission Date: 20090719
  Serious: Yes (Hospitalization)
  Sender: FDA-Public Use
  Company Number: JP-GENENTECH-272283

PATIENT
  Sex: Male
  Weight: 49.4 kg

DRUGS (11)
  1. BEVACIZUMAB [Suspect]
     Indication: COLON CANCER METASTATIC
     Dosage: 240 MG, Q2W
     Route: 041
  2. IRINOTECAN HYDROCHLORIDE [Suspect]
     Indication: COLON CANCER METASTATIC
     Route: 041
  3. TS-1 [Suspect]
     Indication: COLON CANCER METASTATIC
     Route: 041
  4. HANGE-SHASHIN-TO [Concomitant]
     Indication: DRUG USE FOR UNKNOWN INDICATION
  5. COPTIS [Concomitant]
     Indication: DRUG USE FOR UNKNOWN INDICATION
  6. GINSENG [Concomitant]
     Indication: DRUG USE FOR UNKNOWN INDICATION
  7. GLYCYRRHIZA GLABRA [Concomitant]
     Indication: DRUG USE FOR UNKNOWN INDICATION
  8. SCUTELLARIA BAICALENSIS [Concomitant]
     Indication: DRUG USE FOR UNKNOWN INDICATION
  9. KYTRIL [Concomitant]
     Indication: DRUG USE FOR UNKNOWN INDICATION
     Dosage: UNK
     Dates: start: 20081023, end: 20081209
  10. DEXAMETHASONE SODIUM PHOSPHATE [Concomitant]
     Indication: DRUG USE FOR UNKNOWN INDICATION
     Dosage: UNK
     Dates: start: 20081023, end: 20081209
  11. LACTOBACILLUS BIFIDUS [Concomitant]
     Indication: DRUG USE FOR UNKNOWN INDICATION

REACTIONS (3)
  - ANOREXIA [None]
  - FATIGUE [None]
  - PYREXIA [None]
